FAERS Safety Report 11362244 (Version 1)
Quarter: 2015Q3

REPORT INFORMATION
  Report Type: Other
  Country: IT (occurrence: FR)
  Receive Date: 20150810
  Receipt Date: 20150810
  Transmission Date: 20151125
  Serious: Yes (Hospitalization)
  Sender: FDA-Public Use
  Company Number: IT-SIGMA-TAU US-2015STPI000519

PATIENT
  Age: 2 Day
  Sex: Female

DRUGS (10)
  1. CARNITOR [Suspect]
     Active Substance: LEVOCARNITINE
     Indication: PARENTERAL NUTRITION
     Dosage: 0.5 ML, OTHER
     Route: 042
     Dates: start: 20150523, end: 20150524
  2. POTASSIUM CHLORIDE. [Suspect]
     Active Substance: POTASSIUM CHLORIDE
     Indication: PARENTERAL NUTRITION
     Dosage: 4 ML, OTHER
     Route: 042
     Dates: start: 20150523, end: 20150524
  3. MAGNESIUM SULFATE IN DEXTROSE [Suspect]
     Active Substance: MAGNESIUM SULFATE
     Indication: PARENTERAL NUTRITION
     Dosage: 0.5 ML, OTHER
     Route: 042
     Dates: start: 20150523, end: 20150524
  4. CALCIUM GLUCONATE. [Suspect]
     Active Substance: CALCIUM GLUCONATE
     Indication: PARENTERAL NUTRITION
     Dosage: 14 ML, OTHER
     Route: 042
     Dates: start: 20150523, end: 20150524
  5. GLUCOSE [Suspect]
     Active Substance: DEXTROSE
     Indication: PARENTERAL NUTRITION
     Dosage: 58 ML, OTHER
     Route: 042
     Dates: start: 20150523, end: 20150524
  6. CERNEVIT [Suspect]
     Active Substance: VITAMINS
     Indication: PARENTERAL NUTRITION
     Dosage: 2 ML, OTHER
     Route: 042
     Dates: start: 20150523, end: 20150524
  7. ZINC [Suspect]
     Active Substance: ZINC\ZINC CHLORIDE
     Indication: PARENTERAL NUTRITION
     Dosage: UNK, OTHER
     Route: 042
     Dates: start: 20150523, end: 20150524
  8. PHOCYTAN [Suspect]
     Active Substance: .ALPHA.-GLUCOSE-1-PHOSPHATE
     Indication: PARENTERAL NUTRITION
     Dosage: 6 ML, OTHER
     Route: 042
     Dates: start: 20150523, end: 20150524
  9. VAMINOLACT [Suspect]
     Active Substance: ALANINE\ARGININE\ASPARTIC ACID\CYSTEINE HYDROCHLORIDE\GLUTAMIC ACID\GLYCINE\HISTIDINE\ISOLEUCINE\LEUCINE\LYSINE ACETATE\METHIONINE\PHENYLALANINE\PROLINE\SERINE\TAURINE\THREONINE\TRYPTOPHAN\TYROSINE\VALINE
     Indication: PARENTERAL NUTRITION
     Dosage: 68 ML, OTHER
     Route: 042
     Dates: start: 20150523, end: 20150524
  10. SMOFLIPID [Suspect]
     Active Substance: FISH OIL\OLIVEOIL\SOYBEAN OIL\TRIGLYCERIDES,UNSPECIFIED LENGTH
     Indication: PARENTERAL NUTRITION
     Dosage: 24 ML, UNK
     Route: 042
     Dates: start: 20150523, end: 20150524

REACTIONS (4)
  - Metabolic acidosis [Recovered/Resolved]
  - Hyperglycaemia [Recovered/Resolved]
  - Hyperkalaemia [Recovered/Resolved]
  - Hypercalcaemia [Recovered/Resolved]

NARRATIVE: CASE EVENT DATE: 20140523
